FAERS Safety Report 22141293 (Version 1)
Quarter: 2023Q1

REPORT INFORMATION
  Report Type: Spontaneous
  Country: US (occurrence: None)
  Receive Date: 20230324
  Receipt Date: 20230324
  Transmission Date: 20230417
  Serious: No
  Sender: FDA-Public Use
  Company Number: None

PATIENT
  Sex: Male
  Weight: 92.53 kg

DRUGS (21)
  1. ERLEADA [Suspect]
     Active Substance: APALUTAMIDE
     Indication: Prostate cancer
     Dosage: FREQUENCY : DAILY;?
     Route: 048
     Dates: start: 202212
  2. ALLOPURINOL [Concomitant]
     Active Substance: ALLOPURINOL
  3. ATORVASTATIN BREO [Concomitant]
  4. DULCOLAX NOS [Concomitant]
     Active Substance: BISACODYL OR DOCUSATE SODIUM
  5. ELIGARD [Concomitant]
     Active Substance: LEUPROLIDE ACETATE
  6. INSULIN GLARGINE [Concomitant]
     Active Substance: INSULIN GLARGINE
  7. INSULIN LISPRO [Concomitant]
     Active Substance: INSULIN LISPRO
  8. METOPROLOL [Concomitant]
     Active Substance: METOPROLOL
  9. VITAMIN B COMPLEX [Concomitant]
     Active Substance: CYANOCOBALAMIN\DEXPANTHENOL\NIACINAMIDE\PYRIDOXINE HYDROCHLORIDE\RIBOFLAVIN 5^-PHOSPHATE SODIUM\THIA
  10. ALBUTEROL [Concomitant]
     Active Substance: ALBUTEROL
  11. DEVICE [Concomitant]
     Active Substance: DEVICE
  12. OMEPRAZOLE [Concomitant]
     Active Substance: OMEPRAZOLE
  13. RAMIPRIL [Concomitant]
     Active Substance: RAMIPRIL
  14. SEVELAMER [Concomitant]
     Active Substance: SEVELAMER
  15. CALCITRIOL [Concomitant]
     Active Substance: CALCITRIOL
  16. MIRCERA [Concomitant]
     Active Substance: METHOXY POLYETHYLENE GLYCOL-EPOETIN BETA
  17. VENOFER [Concomitant]
     Active Substance: IRON SUCROSE
  18. ELIQUIS [Concomitant]
     Active Substance: APIXABAN
  19. DIGOXIN [Concomitant]
     Active Substance: DIGOXIN
  20. DILTIAZEM [Concomitant]
     Active Substance: DILTIAZEM
  21. MORPHINE [Concomitant]
     Active Substance: MORPHINE

REACTIONS (3)
  - Disease progression [None]
  - Prostate cancer [None]
  - Therapy cessation [None]
